FAERS Safety Report 18292815 (Version 2)
Quarter: 2020Q4

REPORT INFORMATION
  Report Type: Other
  Country: DE (occurrence: DE)
  Receive Date: 20200922
  Receipt Date: 20201015
  Transmission Date: 20210113
  Serious: Yes (Hospitalization)
  Sender: FDA-Public Use
  Company Number: DE-ROCHE-2581298

PATIENT
  Age: 64 Year
  Sex: Female
  Weight: 55 kg

DRUGS (18)
  1. OCRELIZUMAB. [Suspect]
     Active Substance: OCRELIZUMAB
     Route: 042
     Dates: start: 20191017
  2. PREDNISOLONE. [Concomitant]
     Active Substance: PREDNISOLONE
     Route: 042
     Dates: start: 20190423
  3. AERIUS [Concomitant]
     Route: 048
     Dates: start: 20190507, end: 20190509
  4. RANITIDINE. [Concomitant]
     Active Substance: RANITIDINE
     Route: 048
     Dates: start: 20190422, end: 20190424
  5. VIMPAT [Concomitant]
     Active Substance: LACOSAMIDE
     Indication: TRIGEMINAL NEURALGIA
     Route: 048
     Dates: start: 202002, end: 202003
  6. OCRELIZUMAB. [Suspect]
     Active Substance: OCRELIZUMAB
     Indication: RELAPSING MULTIPLE SCLEROSIS
     Route: 042
     Dates: start: 20190423, end: 20190508
  7. LORAZEPAM. [Suspect]
     Active Substance: LORAZEPAM
     Indication: TRIGEMINAL NEURALGIA
     Route: 048
     Dates: start: 20200325, end: 20200325
  8. TAVOR EXPIDET [Concomitant]
     Active Substance: LORAZEPAM
     Indication: PAIN
  9. DEKRISTOL [Concomitant]
     Active Substance: CHOLECALCIFEROL
     Indication: PROPHYLAXIS
     Route: 048
     Dates: start: 20190415
  10. SATIVEX [Concomitant]
     Active Substance: NABIXIMOLS
     Route: 048
  11. CYTOTEC [Concomitant]
     Active Substance: MISOPROSTOL
     Indication: TRIGEMINAL NEURALGIA
     Route: 048
     Dates: start: 202003
  12. TAVOR EXPIDET [Concomitant]
     Active Substance: LORAZEPAM
     Indication: MUSCLE SPASTICITY
     Route: 048
     Dates: start: 20200326, end: 202003
  13. OXCARBAZEPINE. [Suspect]
     Active Substance: OXCARBAZEPINE
     Indication: ATAXIA
     Route: 048
     Dates: start: 202003
  14. OXCARBAZEPINE. [Suspect]
     Active Substance: OXCARBAZEPINE
     Indication: TRIGEMINAL NEURALGIA
     Route: 048
  15. MISOPROSTOL. [Concomitant]
     Active Substance: MISOPROSTOL
     Indication: TRIGEMINAL NEURALGIA
  16. RANITIDINE. [Concomitant]
     Active Substance: RANITIDINE
     Route: 048
     Dates: start: 20190507, end: 20190509
  17. AERIUS [Concomitant]
     Route: 048
     Dates: start: 20190422, end: 20190424
  18. PREDNISOLONE. [Concomitant]
     Active Substance: PREDNISOLONE
     Route: 042
     Dates: start: 20190508, end: 20190508

REACTIONS (2)
  - Ataxia [Recovered/Resolved]
  - Trigeminal neuralgia [Unknown]

NARRATIVE: CASE EVENT DATE: 20200326
